FAERS Safety Report 7903737-2 (Version None)
Quarter: 2011Q4

REPORT INFORMATION
  Report Type: 
  Country: None (occurrence: None)
  Receive Date: 20111109
  Receipt Date: 20111029
  Transmission Date: 20120403
  Serious: Yes (Other)
  Sender: FDA-Public Use
  Company Number: PHHY2011AU96777

PATIENT

DRUGS (1)
  1. CLOZAPINE [Suspect]

REACTIONS (6)
  - HEART RATE INCREASED [None]
  - CREPITATIONS [None]
  - EJECTION FRACTION DECREASED [None]
  - BLOOD CREATINE PHOSPHOKINASE INCREASED [None]
  - C-REACTIVE PROTEIN INCREASED [None]
  - TROPONIN I INCREASED [None]
